FAERS Safety Report 16772962 (Version 2)
Quarter: 2020Q2

REPORT INFORMATION
  Report Type: Spontaneous
  Country: US (occurrence: US)
  Receive Date: 20190904
  Receipt Date: 20200416
  Transmission Date: 20200713
  Serious: Yes (Disabling, Other)
  Sender: FDA-Public Use
  Company Number: US-AMERICAN REGENT INC-20190844

PATIENT
  Sex: Female
  Weight: 67.2 kg

DRUGS (13)
  1. INJECTAFER [Suspect]
     Active Substance: FERRIC CARBOXYMALTOSE
     Indication: IRON DEFICIENCY ANAEMIA
     Dosage: UNK
     Dates: start: 20141205, end: 20141205
  2. INJECTAFER [Suspect]
     Active Substance: FERRIC CARBOXYMALTOSE
     Dosage: 750 MILLIGRAM IN SODIUM CHLORIDE (NS) 0.9% 250 ML IVPB, FOR 1 DOSE
     Route: 042
     Dates: start: 20150305, end: 20150305
  3. INJECTAFER [Suspect]
     Active Substance: FERRIC CARBOXYMALTOSE
     Dosage: 750 MILLIGRAM IN SODIUM CHLORIDE (NS) 0.9% 250 ML IVPB, FOR 1 DOSE
     Route: 042
     Dates: start: 20150313, end: 20150313
  4. MULTIVITAMIN                       /07504101/ [Concomitant]
     Active Substance: VITAMINS
     Indication: PRODUCT USED FOR UNKNOWN INDICATION
     Dosage: 1 DOSAGE FORM, QD
     Route: 048
  5. CYANOCOBALAMIN INJECTION, USP (0031-25) [Concomitant]
     Active Substance: CYANOCOBALAMIN
     Dosage: 1000 MICROGRAM EVERY 30 DAYS
     Route: 030
     Dates: start: 20150115
  6. CYANOCOBALAMIN INJECTION, USP (0031-25) [Concomitant]
     Active Substance: CYANOCOBALAMIN
     Dosage: ONGOING SELF B12 INJECTIONS EVERY 21 DAYS
  7. INJECTAFER [Suspect]
     Active Substance: FERRIC CARBOXYMALTOSE
     Dosage: UNK, AN ADDITIONAL 5 TIMES
  8. INJECTAFER [Suspect]
     Active Substance: FERRIC CARBOXYMALTOSE
     Dosage: UNK
     Route: 065
     Dates: start: 2017, end: 2017
  9. INJECTAFER [Suspect]
     Active Substance: FERRIC CARBOXYMALTOSE
     Dosage: 750 MILLIGRAM IN SODIUM CHLORIDE (NS) 0.9% 250 ML IVPB, FOR 1 DOSE
     Route: 042
     Dates: start: 20170213, end: 20170213
  10. CYANOCOBALAMIN INJECTION, USP (0031-25) [Concomitant]
     Active Substance: CYANOCOBALAMIN
     Indication: SUPPORTIVE CARE
     Dosage: 1000 MICROGRAM FOR 4 DOSES; AFTER 4 WEEKLY DOSES, WILL THEN TRANSITION TO MONTHLY INJECTIONS
     Route: 030
     Dates: start: 20141205, end: 20141230
  11. CYANOCOBALAMIN INJECTION, USP (0031-25) [Concomitant]
     Active Substance: CYANOCOBALAMIN
     Dosage: 1000 MICROGRAM EVERY 30 DAYS
     Route: 058
     Dates: start: 20150330
  12. INJECTAFER [Suspect]
     Active Substance: FERRIC CARBOXYMALTOSE
     Dosage: 750 MILLIGRAM IN SODIUM CHLORIDE (NS) 0.9% 250 ML IVPB, FOR 1 DOSE
     Route: 042
     Dates: start: 20170220, end: 20170220
  13. ADVIL [Concomitant]
     Active Substance: IBUPROFEN
     Indication: PRODUCT USED FOR UNKNOWN INDICATION
     Dosage: UNK
     Route: 048
     Dates: start: 20140511

REACTIONS (23)
  - Asthenia [Unknown]
  - Pain [Not Recovered/Not Resolved]
  - Anxiety [Not Recovered/Not Resolved]
  - Hypoaesthesia [Not Recovered/Not Resolved]
  - Chest pain [Not Recovered/Not Resolved]
  - Anhedonia [Not Recovered/Not Resolved]
  - Bone pain [Not Recovered/Not Resolved]
  - Weight increased [Unknown]
  - Joint swelling [Not Recovered/Not Resolved]
  - Product quality issue [Unknown]
  - Impaired work ability [Unknown]
  - Sleep disorder [Not Recovered/Not Resolved]
  - Vertigo [Not Recovered/Not Resolved]
  - Tendon disorder [Unknown]
  - Pain in extremity [Not Recovered/Not Resolved]
  - Arthralgia [Not Recovered/Not Resolved]
  - Impaired self-care [Not Recovered/Not Resolved]
  - Electrocardiogram abnormal [Not Recovered/Not Resolved]
  - Hypophosphataemia [Recovered/Resolved]
  - Grip strength decreased [Not Recovered/Not Resolved]
  - Gait disturbance [Not Recovered/Not Resolved]
  - Negative thoughts [Unknown]
  - Emotional distress [Not Recovered/Not Resolved]

NARRATIVE: CASE EVENT DATE: 2017
